FAERS Safety Report 16959907 (Version 2)
Quarter: 2019Q4

REPORT INFORMATION
  Report Type: Spontaneous
  Country: CA (occurrence: CA)
  Receive Date: 20191025
  Receipt Date: 20191115
  Transmission Date: 20200122
  Serious: No
  Sender: FDA-Public Use
  Company Number: CA-ORION CORPORATION ORION PHARMA-TREX2019-4500

PATIENT
  Age: 60 Year
  Sex: Male

DRUGS (9)
  1. METHOTREXATE (TRADE NAME UNKNOWN) [Suspect]
     Active Substance: METHOTREXATE
     Indication: RHEUMATOID ARTHRITIS
     Dosage: 10 MG Q FRIDAY AM AND 10 MG Q FRIDAY PM
     Route: 048
     Dates: start: 201807
  2. LEFLUNOMIDE. [Concomitant]
     Active Substance: LEFLUNOMIDE
     Indication: RHEUMATOID ARTHRITIS
     Route: 065
     Dates: start: 201811
  3. JANUMET [Concomitant]
     Active Substance: METFORMIN HYDROCHLORIDE\SITAGLIPTIN PHOSPHATE
     Route: 065
  4. PERINDOPRIL [Concomitant]
     Active Substance: PERINDOPRIL
     Route: 065
  5. PREDNISONE. [Concomitant]
     Active Substance: PREDNISONE
     Dosage: 20MG PO OD FOR 1 WEEK THEN DECREASE BY 5MG EVERY WEEK ?UNTIL 5MG OD PO AND CONTINUE FOR 2 WEEKS
     Route: 065
  6. NAPROXEN. [Concomitant]
     Active Substance: NAPROXEN
     Route: 065
  7. SULFASALAZINE. [Concomitant]
     Active Substance: SULFASALAZINE
     Route: 065
     Dates: start: 201808, end: 201811
  8. SULFASALAZINE. [Concomitant]
     Active Substance: SULFASALAZINE
     Dosage: 500 MG PO BID FOR 2 WEEKS AND INCREASE TO 1 G PO BID
     Route: 065
     Dates: start: 201807, end: 2018
  9. FOLIC ACID. [Concomitant]
     Active Substance: FOLIC ACID
     Indication: RHEUMATOID ARTHRITIS
     Route: 048
     Dates: start: 20180722

REACTIONS (10)
  - Synovitis [Unknown]
  - Tender joint count increased [Unknown]
  - C-reactive protein increased [Unknown]
  - Pain in extremity [Unknown]
  - Swollen joint count increased [Unknown]
  - Joint swelling [Unknown]
  - Diarrhoea [Unknown]
  - Arthralgia [Unknown]
  - Rheumatoid arthritis [Unknown]
  - Pain [Unknown]

NARRATIVE: CASE EVENT DATE: 20190301
